FAERS Safety Report 8965215 (Version 1)
Quarter: 2012Q4

REPORT INFORMATION
  Report Type: 
  Country: US (occurrence: US)
  Receive Date: 20121213
  Receipt Date: 20121213
  Transmission Date: 20130627
  Serious: Yes (Other)
  Sender: FDA-Public Use
  Company Number: US-BRISTOL-MYERS SQUIBB COMPANY-16699753

PATIENT
  Age: 49 Year
  Sex: Female
  Weight: 61.4 kg

DRUGS (1)
  1. IXEMPRA [Suspect]
     Indication: BREAST CANCER METASTATIC
     Dosage: No of doses:2(Doses taken on 28Feb2012,20Mar2012)
     Dates: start: 20120228

REACTIONS (1)
  - Malignant neoplasm progression [Unknown]
